FAERS Safety Report 20753112 (Version 1)
Quarter: 2022Q2

REPORT INFORMATION
  Report Type: Spontaneous
  Country: US (occurrence: None)
  Receive Date: 20220426
  Receipt Date: 20220426
  Transmission Date: 20220721
  Serious: No
  Sender: FDA-Public Use
  Company Number: US-ROCHE-3001888

PATIENT
  Sex: Female

DRUGS (1)
  1. ESBRIET [Suspect]
     Active Substance: PIRFENIDONE
     Indication: Product used for unknown indication
     Dosage: ONGOING -YES? 2 TABLETS 3 TIMES IN DAY AND IS TO SET 3 TABLETS 3 TIMES A DAILY
     Route: 048
     Dates: start: 20211203

REACTIONS (2)
  - Nausea [Unknown]
  - Vomiting [Unknown]
